FAERS Safety Report 21907366 (Version 2)
Quarter: 2023Q1

REPORT INFORMATION
  Report Type: Report from Study
  Country: US (occurrence: US)
  Receive Date: 20230125
  Receipt Date: 20230127
  Transmission Date: 20230418
  Serious: No
  Sender: FDA-Public Use
  Company Number: US-002147023-NVSC2023US015834

PATIENT
  Sex: Male
  Weight: 58.503 kg

DRUGS (1)
  1. TREPROSTINIL [Suspect]
     Active Substance: TREPROSTINIL
     Indication: Pulmonary arterial hypertension
     Dosage: UNK UNK, CONT (16NG/KG/MIN)
     Route: 042
     Dates: start: 20220215

REACTIONS (2)
  - Skin lesion [Unknown]
  - Inappropriate schedule of product administration [Unknown]
